FAERS Safety Report 6377886-7 (Version None)
Quarter: 2009Q3

REPORT INFORMATION
  Report Type: 
  Country: None (occurrence: None)
  Receive Date: 20090925
  Receipt Date: 20090915
  Transmission Date: 20100115
  Serious: Yes (Other)
  Sender: FDA-Public Use
  Company Number: PHHY2009FR31890

PATIENT
  Sex: Female
  Weight: 53 kg

DRUGS (1)
  1. LAMISIL [Suspect]
     Dosage: 250 MG, QD
     Route: 048
     Dates: start: 20090626, end: 20090730

REACTIONS (5)
  - ARTHRALGIA [None]
  - ARTHRITIS [None]
  - CHONDROCALCINOSIS [None]
  - INFLAMMATION [None]
  - TENOSYNOVITIS STENOSANS [None]
